FAERS Safety Report 6832086-9 (Version None)
Quarter: 2010Q3

REPORT INFORMATION
  Report Type: 
  Country: None (occurrence: None)
  Receive Date: 20100712
  Receipt Date: 20100629
  Transmission Date: 20110219
  Serious: Yes (Hospitalization)
  Sender: FDA-Public Use
  Company Number: JP-AMGEN-QUU415470

PATIENT
  Age: 70 Year
  Sex: Male

DRUGS (3)
  1. ENBREL [Suspect]
     Indication: RHEUMATOID ARTHRITIS
     Route: 058
     Dates: start: 20100412, end: 20100506
  2. RINDERON [Concomitant]
     Route: 048
     Dates: start: 20100412, end: 20100506
  3. PROGRAF [Concomitant]
     Dosage: NOT PROVIDED
     Route: 048
     Dates: start: 20100412, end: 20100506

REACTIONS (2)
  - PNEUMONIA PNEUMOCOCCAL [None]
  - RENAL DISORDER [None]
